FAERS Safety Report 24086252 (Version 2)
Quarter: 2024Q3

REPORT INFORMATION
  Report Type: Spontaneous
  Country: US (occurrence: US)
  Receive Date: 20240712
  Receipt Date: 20240912
  Transmission Date: 20241016
  Serious: No
  Sender: GLAXOSMITHKLINE
  Company Number: US-GLAXOSMITHKLINE-US2024AMR084283

PATIENT
  Sex: Female
  Weight: 82.086 kg

DRUGS (1)
  1. ZEJULA [Suspect]
     Active Substance: NIRAPARIB
     Indication: Ovarian cancer
     Dosage: 200 MG, QD
     Route: 048
     Dates: start: 20240403

REACTIONS (7)
  - White blood cell disorder [Recovering/Resolving]
  - Nausea [Not Recovered/Not Resolved]
  - Regurgitation [Not Recovered/Not Resolved]
  - Muscle spasms [Unknown]
  - Gastrointestinal disorder [Unknown]
  - Fatigue [Unknown]
  - Loss of personal independence in daily activities [Unknown]
